FAERS Safety Report 22160313 (Version 3)
Quarter: 2023Q4

REPORT INFORMATION
  Report Type: Report from Study
  Country: PR (occurrence: PR)
  Receive Date: 20230331
  Receipt Date: 20231023
  Transmission Date: 20240109
  Serious: Yes (Other)
  Sender: FDA-Public Use
  Company Number: PR-ABBVIE-4709212

PATIENT
  Sex: Male
  Weight: 104 kg

DRUGS (6)
  1. HUMIRA [Suspect]
     Active Substance: ADALIMUMAB
     Indication: Psoriatic arthropathy
     Dosage: 40MG/0.4ML,FORM STRENGTH: 40 MG
     Route: 058
  2. HUMIRA [Suspect]
     Active Substance: ADALIMUMAB
  3. PFIZER-BIONTECH COVID-19 VACCINE [Concomitant]
     Active Substance: TOZINAMERAN
     Indication: COVID-19
     Dosage: FOUR DOSE
     Route: 030
     Dates: start: 20220729, end: 20220729
  4. PFIZER-BIONTECH COVID-19 VACCINE [Concomitant]
     Active Substance: TOZINAMERAN
     Indication: COVID-19
     Dosage: SECOND DOSE
     Route: 030
     Dates: start: 20210212, end: 20210212
  5. PFIZER-BIONTECH COVID-19 VACCINE [Concomitant]
     Active Substance: TOZINAMERAN
     Indication: COVID-19
     Dosage: FIRST DOSE
     Route: 030
     Dates: start: 20210115, end: 20210115
  6. PFIZER-BIONTECH COVID-19 VACCINE [Concomitant]
     Active Substance: TOZINAMERAN
     Indication: COVID-19
     Dosage: THIRD DOSE
     Route: 030
     Dates: start: 20211109, end: 20211109

REACTIONS (4)
  - Tendon rupture [Recovered/Resolved]
  - Parkinson^s disease [Not Recovered/Not Resolved]
  - Fall [Recovered/Resolved]
  - Insomnia [Not Recovered/Not Resolved]

NARRATIVE: CASE EVENT DATE: 20150101
